FAERS Safety Report 8606881-X (Version None)
Quarter: 2012Q3

REPORT INFORMATION
  Report Type: 
  Country: None (occurrence: None)
  Receive Date: 20120820
  Receipt Date: 20120820
  Transmission Date: 20120928
  Serious: Yes (Other)
  Sender: FDA-Public Use
  Company Number: GB-JNJFOC-20090906250

PATIENT
  Sex: Female

DRUGS (3)
  1. REMICADE [Suspect]
     Indication: CROHN'S DISEASE
     Route: 042
     Dates: start: 20061102, end: 20080206
  2. METHOTREXATE [Concomitant]
     Indication: ARTHRALGIA
     Dates: start: 20050501, end: 20080101
  3. ASACOL [Concomitant]

REACTIONS (3)
  - LUPUS-LIKE SYNDROME [None]
  - MATERNAL EXPOSURE DURING PREGNANCY [None]
  - ANTIBODY TEST POSITIVE [None]
